FAERS Safety Report 6582997-7 (Version None)
Quarter: 2010Q1

REPORT INFORMATION
  Report Type: 
  Country: None (occurrence: None)
  Receive Date: 20100216
  Receipt Date: 20090826
  Transmission Date: 20100710
  Serious: Yes (Death, Hospitalization, Other)
  Sender: FDA-Public Use
  Company Number: JP-ROCHE-643641

PATIENT
  Sex: Male
  Weight: 58 kg

DRUGS (26)
  1. AVASTIN [Suspect]
     Indication: LARGE INTESTINE CARCINOMA
     Route: 041
     Dates: start: 20081007, end: 20081021
  2. AVASTIN [Suspect]
     Route: 041
     Dates: start: 20090227, end: 20090227
  3. ELPLAT [Suspect]
     Indication: RECTAL CANCER METASTATIC
     Route: 041
     Dates: start: 20090130, end: 20090227
  4. 5-FU [Suspect]
     Indication: RECTAL CANCER METASTATIC
     Route: 041
     Dates: start: 20090130, end: 20090227
  5. 5-FU [Suspect]
     Route: 041
     Dates: end: 20090201
  6. LEVOFOLINATE [Suspect]
     Indication: RECTAL CANCER METASTATIC
     Route: 041
     Dates: start: 20090130, end: 20090227
  7. TS-1 [Suspect]
     Indication: RECTAL CANCER METASTATIC
     Route: 048
     Dates: start: 20081007, end: 20081027
  8. IRINOTECAN HYDROCHLORIDE [Suspect]
     Indication: RECTAL CANCER METASTATIC
     Route: 041
     Dates: start: 20081007, end: 20081021
  9. IRINOTECAN HYDROCHLORIDE [Suspect]
     Route: 041
     Dates: start: 20090424, end: 20090424
  10. DECADRON [Suspect]
     Indication: DRUG USE FOR UNKNOWN INDICATION
     Route: 041
     Dates: start: 20081007, end: 20090602
  11. LOXONIN [Suspect]
     Indication: PAIN PROPHYLAXIS
     Dosage: NOTE: SINGLE USE.
     Route: 048
     Dates: start: 20081021, end: 20090615
  12. ERBITUX [Suspect]
     Indication: RECTAL CANCER METASTATIC
     Route: 041
     Dates: start: 20090317, end: 20090317
  13. ERBITUX [Suspect]
     Route: 041
     Dates: end: 20090602
  14. RINDERON [Suspect]
     Indication: DRUG USE FOR UNKNOWN INDICATION
     Dosage: TAKEN AS NEEDED.
     Route: 048
     Dates: start: 20090602, end: 20090630
  15. VOLTAREN [Suspect]
     Indication: DRUG USE FOR UNKNOWN INDICATION
     Dosage: TAKEN AS NEEDED.
     Route: 048
     Dates: start: 20090616, end: 20090629
  16. PREDONINE [Suspect]
     Indication: DRUG USE FOR UNKNOWN INDICATION
     Route: 048
     Dates: start: 20090701, end: 20090702
  17. HALCION [Concomitant]
     Route: 048
     Dates: end: 20090705
  18. AMLODIPINE [Concomitant]
     Route: 048
     Dates: start: 20080801, end: 20081101
  19. BLOPRESS [Concomitant]
     Route: 048
     Dates: start: 20080801, end: 20090630
  20. PURSENNID [Concomitant]
     Route: 048
     Dates: start: 20080828, end: 20090705
  21. ONDANSETRON [Concomitant]
     Route: 041
     Dates: start: 20081007, end: 20090227
  22. VITAMEDIN [Concomitant]
     Route: 048
     Dates: start: 20081001, end: 20081101
  23. WAKADENIN [Concomitant]
     Route: 048
     Dates: start: 20081001, end: 20081101
  24. MUCOSTA [Concomitant]
     Route: 048
     Dates: start: 20081021, end: 20090629
  25. GASTER D [Concomitant]
     Route: 048
     Dates: start: 20081021, end: 20090701
  26. LOPEMIN [Concomitant]
     Route: 048
     Dates: start: 20081023, end: 20081105

REACTIONS (30)
  - ACNE [None]
  - CHEILITIS [None]
  - CONSTIPATION [None]
  - DECREASED APPETITE [None]
  - DEHYDRATION [None]
  - DIARRHOEA [None]
  - DISEASE PROGRESSION [None]
  - EPISTAXIS [None]
  - FAECAL INCONTINENCE [None]
  - GASTRIC ULCER [None]
  - GASTRIC ULCER HAEMORRHAGE [None]
  - GASTRITIS [None]
  - HAEMATEMESIS [None]
  - HAEMOGLOBIN DECREASED [None]
  - MALAISE [None]
  - MALNUTRITION [None]
  - MELAENA [None]
  - NAUSEA [None]
  - NEUROPATHY PERIPHERAL [None]
  - NEUTROPHIL COUNT DECREASED [None]
  - PLATELET COUNT DECREASED [None]
  - PNEUMONIA [None]
  - PROTEIN URINE [None]
  - PROTEIN URINE PRESENT [None]
  - PYREXIA [None]
  - RASH [None]
  - RESPIRATORY ARREST [None]
  - VOMITING [None]
  - WEIGHT DECREASED [None]
  - WHITE BLOOD CELL COUNT DECREASED [None]
